FAERS Safety Report 17479984 (Version 2)
Quarter: 2020Q2

REPORT INFORMATION
  Report Type: Spontaneous
  Country: US (occurrence: US)
  Receive Date: 20200228
  Receipt Date: 20200504
  Transmission Date: 20200713
  Serious: Yes (Other)
  Sender: FDA-Public Use
  Company Number: US-PFIZER INC-2020087864

PATIENT
  Age: 58 Year
  Sex: Female

DRUGS (2)
  1. XELJANZ [Suspect]
     Active Substance: TOFACITINIB CITRATE
     Indication: COLITIS ULCERATIVE
     Dosage: 10 MG, 2X/DAY
     Route: 048
     Dates: start: 20191018, end: 202004
  2. PREDNISONE. [Concomitant]
     Active Substance: PREDNISONE
     Dosage: TAPERING

REACTIONS (6)
  - Drug ineffective [Unknown]
  - Accident [Recovering/Resolving]
  - Frequent bowel movements [Recovering/Resolving]
  - Nausea [Recovering/Resolving]
  - Haematochezia [Recovering/Resolving]
  - Rash [Recovering/Resolving]

NARRATIVE: CASE EVENT DATE: 201912
